FAERS Safety Report 5520467-5 (Version None)
Quarter: 2007Q4

REPORT INFORMATION
  Report Type: 
  Country: None (occurrence: None)
  Receive Date: 20071119
  Receipt Date: 20071105
  Transmission Date: 20080405
  Serious: Yes (Disabling, Other)
  Sender: FDA-Public Use
  Company Number: IE-PFIZER INC-2007016097

PATIENT
  Sex: Female

DRUGS (10)
  1. CHAMPIX [Suspect]
     Indication: SMOKING CESSATION THERAPY
     Dosage: FREQ:DAILY:EVERY DAY
     Route: 048
     Dates: start: 20061218, end: 20070105
  2. FOSAMAX [Concomitant]
     Route: 048
  3. INDERAL [Concomitant]
     Route: 048
  4. IDEOS [Concomitant]
     Route: 048
  5. ALL OTHER THERAPEUTIC PRODUCTS [Concomitant]
     Route: 061
  6. ALL OTHER THERAPEUTIC PRODUCTS [Concomitant]
     Route: 048
  7. DALMANE [Concomitant]
     Route: 048
  8. DRUG, UNSPECIFIED [Concomitant]
  9. ZYDOL - SLOW RELEASE [Concomitant]
  10. PANTOPRAZOLE SODIUM [Concomitant]
     Route: 048

REACTIONS (5)
  - ARTHRALGIA [None]
  - C-REACTIVE PROTEIN INCREASED [None]
  - JOINT STIFFNESS [None]
  - RED BLOOD CELL SEDIMENTATION RATE INCREASED [None]
  - RHEUMATOID FACTOR POSITIVE [None]
